FAERS Safety Report 5707827-4 (Version None)
Quarter: 2008Q2

REPORT INFORMATION
  Report Type: 
  Country: None (occurrence: None)
  Receive Date: 20080417
  Receipt Date: 20080407
  Transmission Date: 20081010
  Serious: Yes (Other)
  Sender: FDA-Public Use
  Company Number: US-JNJFOC-20080402293

PATIENT
  Sex: Female

DRUGS (2)
  1. REMICADE [Suspect]
     Indication: CROHN'S DISEASE
     Dosage: 9 INFUSIONS OVER 4 YEARS AGO
     Route: 042
  2. PREDNISONE [Suspect]
     Indication: CROHN'S DISEASE

REACTIONS (2)
  - BONE DISORDER [None]
  - BONE PAIN [None]
